FAERS Safety Report 14139851 (Version 1)
Quarter: 2017Q4

REPORT INFORMATION
  Report Type: Spontaneous
  Country: IT (occurrence: IT)
  Receive Date: 20171030
  Receipt Date: 20171030
  Transmission Date: 20180321
  Serious: Yes (Other)
  Sender: FDA-Public Use
  Company Number: IT-GLENMARK PHARMACEUTICALS-2017GMK029384

PATIENT

DRUGS (5)
  1. PREDNISONE. [Suspect]
     Active Substance: PREDNISONE
     Indication: STEVENS-JOHNSON SYNDROME
     Dosage: 50 MG, QD
     Route: 065
  2. TEICOPLANIN [Concomitant]
     Active Substance: TEICOPLANIN
     Indication: STAPHYLOCOCCAL INFECTION
     Dosage: UNK
     Route: 065
  3. HYDROCORTISONE BUTYRATE. [Suspect]
     Active Substance: HYDROCORTISONE BUTYRATE
     Indication: STEVENS-JOHNSON SYNDROME
     Dosage: 1 G, BOLUS
     Route: 065
  4. DIAZEPAM. [Concomitant]
     Active Substance: DIAZEPAM
     Indication: SEIZURE
     Route: 065
  5. PREDNISONE. [Suspect]
     Active Substance: PREDNISONE
     Dosage: TAPERED DOSE
     Route: 065

REACTIONS (1)
  - Psychotic disorder [Recovering/Resolving]
